FAERS Safety Report 16810379 (Version 1)
Quarter: 2019Q3

REPORT INFORMATION
  Report Type: Spontaneous
  Country: US (occurrence: US)
  Receive Date: 20190916
  Receipt Date: 20190916
  Transmission Date: 20191005
  Serious: No
  Sender: FDA-Public Use
  Company Number: US-BAYER-2019-168656

PATIENT
  Age: 69 Year
  Sex: Female
  Weight: 66 kg

DRUGS (4)
  1. ASPIRIN 81 [Concomitant]
     Active Substance: ASPIRIN
  2. MIRALAX [Suspect]
     Active Substance: POLYETHYLENE GLYCOL 3350
     Dosage: 17 G, QD
     Dates: start: 201909
  3. MIRALAX [Suspect]
     Active Substance: POLYETHYLENE GLYCOL 3350
     Dosage: 1 TEASPOON, QD
     Route: 048
     Dates: start: 20190902, end: 20190909
  4. CHOLESTEROL [Concomitant]
     Active Substance: CHOLESTEROL

REACTIONS (2)
  - Incorrect dose administered [None]
  - Product use issue [Unknown]

NARRATIVE: CASE EVENT DATE: 20190902
